FAERS Safety Report 15849236 (Version 2)
Quarter: 2019Q1

REPORT INFORMATION
  Report Type: Report from Study
  Country: ZA (occurrence: ZA)
  Receive Date: 20190121
  Receipt Date: 20190123
  Transmission Date: 20190417
  Serious: Yes (Hospitalization)
  Sender: FDA-Public Use
  Company Number: ZA-SA-2019SA010087

PATIENT
  Age: 55 Year
  Sex: Male

DRUGS (4)
  1. DIAGLUCIDE [Concomitant]
     Active Substance: GLICLAZIDE
     Dosage: BB-60 MG (BEFORE BREAKFAST)
     Dates: start: 20180303
  2. INSULIN GLARGINE [Suspect]
     Active Substance: INSULIN GLARGINE
     Dosage: UNK
  3. METFORMIN [Concomitant]
     Active Substance: METFORMIN HYDROCHLORIDE
     Dosage: AS-1 G  AB-1 G (AFTER SUPPER AND AFTER BREAKFAST)
     Dates: start: 20131231
  4. OPTISULIN (INSULIN GLARGINE) [Suspect]
     Active Substance: INSULIN GLARGINE
     Dosage: BB-12 UNITS (BEFORE BREAKFAST)
     Dates: start: 20181102

REACTIONS (2)
  - Glycosylated haemoglobin increased [Unknown]
  - Diarrhoea [Unknown]
